FAERS Safety Report 9822053 (Version 2)
Quarter: 2014Q1

REPORT INFORMATION
  Report Type: Report from Study
  Country: US (occurrence: US)
  Receive Date: 20140116
  Receipt Date: 20140204
  Transmission Date: 20141002
  Serious: Yes (Hospitalization, Other)
  Sender: FDA-Public Use
  Company Number: US-PURDUE-USA-2014-0110177

PATIENT
  Age: 39 Year
  Sex: Male
  Weight: 85.26 kg

DRUGS (6)
  1. OXY CR TAB [Suspect]
     Indication: BACK PAIN
     Dosage: 15 MG, BID
     Route: 048
     Dates: start: 20130920, end: 20131220
  2. OXY CR TAB [Suspect]
     Indication: PAIN
  3. GABAPENTIN [Concomitant]
     Indication: PRODUCT USED FOR UNKNOWN INDICATION
     Dosage: 800 MG, TID
     Route: 065
     Dates: start: 20130906
  4. FLUOXETINE [Concomitant]
     Indication: DEPRESSION
     Dosage: 40 MG, UNK
     Route: 065
     Dates: start: 20131014
  5. AMITRIPTYLINE [Concomitant]
     Indication: PAIN
     Dosage: 75 MG, HS
     Route: 065
     Dates: start: 20131028
  6. AMITRIPTYLINE [Concomitant]
     Indication: INSOMNIA

REACTIONS (3)
  - Suicidal ideation [Unknown]
  - Breakthrough pain [Recovered/Resolved]
  - Intentional drug misuse [Unknown]
